FAERS Safety Report 8790700 (Version 2)
Quarter: 2012Q4

REPORT INFORMATION
  Report Type: Spontaneous
  Country: DE (occurrence: None)
  Receive Date: 20120907
  Receipt Date: 20120917
  Transmission Date: 20130627
  Serious: Yes (Hospitalization)
  Sender: FDA-Public Use
  Company Number: 2012AP002875

PATIENT
  Age: 51 Year
  Sex: Female

DRUGS (8)
  1. OLANZAPINE [Suspect]
     Indication: CATATONIC SCHIZOPHRENIA
  2. OLANZAPINE [Suspect]
     Indication: CATATONIC SCHIZOPHRENIA
  3. OLANZAPINE [Suspect]
     Indication: CATATONIC SCHIZOPHRENIA
  4. LEVOTHYROXINE SODIUM [Suspect]
     Indication: HYPOTHYROIDISM
  5. LORAZEPAM (LORAZEPAM) [Suspect]
     Indication: DRUG USE FOR UNKNOWN INDICATION
  6. FLUPHENAZINE (FLUPHENAZINE) [Concomitant]
  7. AMISULPRIDE (AMISULPRIDE) [Concomitant]
  8. FLUPENTIXOL (FLUPENTIXOL) [Concomitant]

REACTIONS (8)
  - Hypothermia [None]
  - Mental disorder [None]
  - Condition aggravated [None]
  - Blood creatinine increased [None]
  - Protein total abnormal [None]
  - Schizophrenia, disorganised type [None]
  - Catatonia [None]
  - Hypophagia [None]
